FAERS Safety Report 15476614 (Version 1)
Quarter: 2018Q4

REPORT INFORMATION
  Report Type: Report from Study
  Country: MX (occurrence: MX)
  Receive Date: 20181009
  Receipt Date: 20181009
  Transmission Date: 20190205
  Serious: Yes (Life-Threatening, Hospitalization)
  Sender: FDA-Public Use
  Company Number: MX-ROCHE-688351

PATIENT
  Age: 63 Year
  Sex: Female
  Weight: 60 kg

DRUGS (7)
  1. METHOTREXATE. [Suspect]
     Active Substance: METHOTREXATE
     Indication: RHEUMATOID ARTHRITIS
     Dosage: WEEKLY FOR 52 WEEKS
     Route: 048
  2. CALCORT [Concomitant]
     Active Substance: DEFLAZACORT
     Route: 065
  3. TOCILIZUMAB. [Suspect]
     Active Substance: TOCILIZUMAB
     Indication: RHEUMATOID ARTHRITIS
     Dosage: EVERY 4 WEEKS FOR 12 MONTHS IN YEAR 2?LAST DOSE PRIOR TO SAE: 05 JANUARY 2010.THERAPY TEMPORARILY ST
     Route: 042
  4. PARACETAMOL [Concomitant]
     Active Substance: ACETAMINOPHEN
     Route: 065
  5. FOLIC ACID. [Concomitant]
     Active Substance: FOLIC ACID
     Route: 065
  6. DANAZOL. [Concomitant]
     Active Substance: DANAZOL
     Route: 065
  7. TOCILIZUMAB. [Suspect]
     Active Substance: TOCILIZUMAB
     Indication: RHEUMATOID ARTHRITIS
     Route: 042

REACTIONS (2)
  - Hepatic cirrhosis [Not Recovered/Not Resolved]
  - Cholelithiasis [Recovered/Resolved]

NARRATIVE: CASE EVENT DATE: 20100218
